FAERS Safety Report 5683336-6 (Version None)
Quarter: 2008Q1

REPORT INFORMATION
  Report Type: 
  Country: None (occurrence: None)
  Receive Date: 20080326
  Receipt Date: 20080314
  Transmission Date: 20080703
  Serious: Yes (Hospitalization)
  Sender: FDA-Public Use
  Company Number: 232671J08USA

PATIENT
  Age: 22 Year
  Sex: Female

DRUGS (2)
  1. REBIF [Suspect]
     Indication: MULTIPLE SCLEROSIS
     Dosage: 44 MCG, 3 IN 1 WEEKS, SUBCUTANEOUS
     Route: 058
     Dates: start: 20080114
  2. TYLENOL (COTYLENOL) [Concomitant]

REACTIONS (2)
  - CONDITION AGGRAVATED [None]
  - MULTIPLE SCLEROSIS [None]
